FAERS Safety Report 5340082-6 (Version None)
Quarter: 2007Q2

REPORT INFORMATION
  Report Type: 
  Country: None (occurrence: None)
  Receive Date: 20070531
  Receipt Date: 20070528
  Transmission Date: 20071010
  Serious: Yes (Death)
  Sender: FDA-Public Use
  Company Number: FR-BRISTOL-MYERS SQUIBB COMPANY-13797352

PATIENT
  Age: 81 Year
  Sex: Male
  Weight: 76 kg

DRUGS (6)
  1. COUMADIN [Suspect]
     Route: 048
     Dates: end: 20070126
  2. LEVOTHYROXINE SODIUM [Concomitant]
     Route: 048
  3. MORPHINE CHLORIDE [Concomitant]
     Route: 048
  4. RYTHMOL [Concomitant]
     Route: 048
  5. DILTIAZEM HCL [Concomitant]
     Route: 048
  6. URAPIDIL [Concomitant]
     Route: 048

REACTIONS (3)
  - HAEMATOMA [None]
  - LUNG DISORDER [None]
  - NEUROLOGICAL SYMPTOM [None]
